FAERS Safety Report 5318833-6 (Version None)
Quarter: 2007Q2

REPORT INFORMATION
  Report Type: 
  Country: None (occurrence: None)
  Receive Date: 20070508
  Receipt Date: 20070421
  Transmission Date: 20071010
  Serious: Yes (Hospitalization)
  Sender: FDA-Public Use
  Company Number: US-AVENTIS-200712861US

PATIENT
  Age: 65 Year
  Sex: Female

DRUGS (12)
  1. LANTUS [Suspect]
     Dates: start: 20070101
  2. OPTICLIK GREY [Suspect]
     Dates: start: 20070101
  3. NOVOLOG [Concomitant]
     Dosage: DOSE: UNK
  4. LASIX [Concomitant]
     Dosage: DOSE: UNK
  5. METOLAZONE [Concomitant]
     Dosage: DOSE: UNK
  6. ALLOPURINOL [Concomitant]
     Dosage: DOSE: UNK
  7. MAGNESIUM SULFATE [Concomitant]
     Dosage: DOSE: UNK
  8. POTASSIUM CHLORIDE [Concomitant]
     Dosage: DOSE: UNK
  9. VITAMIN E [Concomitant]
     Dosage: DOSE: UNK
  10. TYLENOL [Concomitant]
     Dosage: DOSE: UNK
  11. ASPIRIN [Concomitant]
     Dosage: DOSE: UNK
  12. PROTONIX [Concomitant]
     Dosage: DOSE: UNK

REACTIONS (3)
  - BLOOD GLUCOSE INCREASED [None]
  - HOSPITALISATION [None]
  - INFECTION [None]
